FAERS Safety Report 9115246 (Version 1)
Quarter: 2013Q1

REPORT INFORMATION
  Report Type: Spontaneous
  Country: US (occurrence: None)
  Receive Date: 20130220
  Receipt Date: 20130220
  Transmission Date: 20140127
  Serious: Yes (Hospitalization)
  Sender: FDA-Public Use
  Company Number: None

PATIENT
  Sex: Male
  Weight: 89.9 kg

DRUGS (2)
  1. EVEROLIMUS [Suspect]
     Indication: RENAL CELL CARCINOMA
     Dates: end: 20130208
  2. EVEROLIMUS [Suspect]
     Indication: ADENOCARCINOMA
     Dates: end: 20130208

REACTIONS (8)
  - Pyrexia [None]
  - Fatigue [None]
  - Lethargy [None]
  - Diarrhoea [None]
  - Orchitis [None]
  - Small intestinal obstruction [None]
  - Penile oedema [None]
  - Scrotal oedema [None]
